FAERS Safety Report 19583786 (Version 1)
Quarter: 2021Q3

REPORT INFORMATION
  Report Type: Spontaneous
  Country: US (occurrence: US)
  Receive Date: 20210720
  Receipt Date: 20210720
  Transmission Date: 20211014
  Serious: No
  Sender: FDA-Public Use
  Company Number: US-009507513-2107USA002041

PATIENT
  Sex: Female

DRUGS (1)
  1. BELSOMRA [Suspect]
     Active Substance: SUVOREXANT
     Indication: SLEEP DISORDER
     Dosage: 10 MILLIGRAM, AT BEDTIME
     Route: 048
     Dates: start: 202106

REACTIONS (2)
  - Autoscopy [Unknown]
  - Sleep paralysis [Unknown]

NARRATIVE: CASE EVENT DATE: 202106
